FAERS Safety Report 11417407 (Version 1)
Quarter: 2015Q3

REPORT INFORMATION
  Report Type: Report from Study
  Country: IN (occurrence: IN)
  Receive Date: 20150825
  Receipt Date: 20150825
  Transmission Date: 20151125
  Serious: Yes (Other)
  Sender: FDA-Public Use
  Company Number: PHHY2015IN102217

PATIENT
  Age: 5 Year
  Sex: Female
  Weight: 20 kg

DRUGS (1)
  1. NEORAL [Suspect]
     Active Substance: CYCLOSPORINE
     Indication: TRANSPLANT
     Dosage: 50 MG, QD
     Route: 048
     Dates: start: 201403, end: 20150804

REACTIONS (3)
  - Nephrotic syndrome [Unknown]
  - Vomiting [Recovering/Resolving]
  - Pyrexia [Recovered/Resolved]

NARRATIVE: CASE EVENT DATE: 20150718
